FAERS Safety Report 12552903 (Version 2)
Quarter: 2016Q3

REPORT INFORMATION
  Report Type: Spontaneous
  Country: JP (occurrence: JP)
  Receive Date: 20160713
  Receipt Date: 20160805
  Transmission Date: 20161109
  Serious: Yes (Hospitalization)
  Sender: FDA-Public Use
  Company Number: JP-ELI_LILLY_AND_COMPANY-JP201607002809

PATIENT
  Age: 50 Year
  Sex: Male

DRUGS (5)
  1. ERBITUX [Suspect]
     Active Substance: CETUXIMAB
     Indication: COLORECTAL CANCER
     Dosage: 720 MG, WEEKLY (1/W)
     Route: 042
     Dates: start: 20160601
  2. 5-FU                               /00098801/ [Concomitant]
     Active Substance: FLUOROURACIL
     Indication: COLORECTAL CANCER
     Dosage: 4300 DF, UNKNOWN
     Route: 040
     Dates: start: 20160601
  3. OXALIPLATIN. [Concomitant]
     Active Substance: OXALIPLATIN
     Indication: COLORECTAL CANCER
     Dosage: 150 DF, UNKNOWN
     Route: 065
     Dates: start: 20160601
  4. ERBITUX [Suspect]
     Active Substance: CETUXIMAB
     Dosage: 450 MG, WEEKLY (1/W)
     Route: 042
  5. LEUCOVORIN                         /00566701/ [Concomitant]
     Active Substance: LEUCOVORIN
     Indication: COLORECTAL CANCER
     Dosage: 360 DF, UNKNOWN
     Route: 065
     Dates: start: 20160601

REACTIONS (1)
  - Gastrointestinal perforation [Recovering/Resolving]
